FAERS Safety Report 11952319 (Version 3)
Quarter: 2016Q1

REPORT INFORMATION
  Report Type: Report from Study
  Country: US (occurrence: US)
  Receive Date: 20160126
  Receipt Date: 20160210
  Transmission Date: 20160526
  Serious: Yes (Other)
  Sender: FDA-Public Use
  Company Number: US-GILEAD-2016-0194599

PATIENT
  Age: 79 Year
  Sex: Female

DRUGS (3)
  1. AMBRISENTAN [Suspect]
     Active Substance: AMBRISENTAN
     Indication: SYSTEMIC LUPUS ERYTHEMATOSUS
  2. AMBRISENTAN [Suspect]
     Active Substance: AMBRISENTAN
     Indication: PULMONARY HYPERTENSION
     Dosage: 5 MG, QD
     Route: 065
     Dates: start: 20151231
  3. OXYGEN. [Concomitant]
     Active Substance: OXYGEN
     Dosage: WHEN WALKS

REACTIONS (7)
  - Drug ineffective [Unknown]
  - Injury [Unknown]
  - Dry skin [Unknown]
  - Sinus disorder [Not Recovered/Not Resolved]
  - Blood pressure diastolic decreased [Unknown]
  - Pruritus [Unknown]
  - Fall [Unknown]
